FAERS Safety Report 4702230-8 (Version None)
Quarter: 2005Q2

REPORT INFORMATION
  Report Type: 
  Country: None (occurrence: None)
  Receive Date: 20050628
  Receipt Date: 20050628
  Transmission Date: 20051028
  Serious: No
  Sender: FDA-Public Use
  Company Number: None

PATIENT
  Sex: Female
  Weight: 59 kg

DRUGS (3)
  1. CYTARABINE [Suspect]
     Dosage: 100 MG/M2/DAY BY CIV ON DAYS 1-7
     Route: 042
     Dates: start: 20050513
  2. DAUNORUBICIN [Suspect]
     Dosage: 60 MG/M2 /DAY BY IVP ON DAYS 1-3
     Route: 040
  3. INSULIN [Concomitant]

REACTIONS (2)
  - BLOOD GLUCOSE INCREASED [None]
  - VOMITING [None]
